FAERS Safety Report 14053235 (Version 1)
Quarter: 2017Q4

REPORT INFORMATION
  Report Type: Spontaneous
  Country: ZA (occurrence: ZA)
  Receive Date: 20171006
  Receipt Date: 20171006
  Transmission Date: 20180321
  Serious: Yes (Hospitalization)
  Sender: FDA-Public Use
  Company Number: ZA-009507513-1710ZAF001890

PATIENT
  Age: 66 Year
  Sex: Female
  Weight: 83 kg

DRUGS (5)
  1. KETAMINE [Concomitant]
     Active Substance: KETAMINE
     Dosage: 5.5 ML, UNK
     Route: 042
  2. DIPIRONE [Concomitant]
     Active Substance: METAMIZOLE SODIUM
     Dosage: 5.5 ML, UNK
     Route: 042
     Dates: start: 20170801
  3. FENTANYL. [Concomitant]
     Active Substance: FENTANYL
     Dosage: 100 MG, ROUTE ^I^
  4. BRIDION [Suspect]
     Active Substance: SUGAMMADEX
     Dosage: 4 AMPOULES
     Dates: start: 20170801
  5. ESMERON [Suspect]
     Active Substance: ROCURONIUM BROMIDE
     Indication: ENDOTRACHEAL INTUBATION
     Dosage: 50 MG, ONCE
     Route: 042
     Dates: start: 20170801, end: 20170801

REACTIONS (1)
  - Amnesia [Recovered/Resolved]

NARRATIVE: CASE EVENT DATE: 2017
